FAERS Safety Report 7153607-5 (Version None)
Quarter: 2010Q4

REPORT INFORMATION
  Report Type: 
  Country: None (occurrence: None)
  Receive Date: 20101213
  Receipt Date: 20101210
  Transmission Date: 20110411
  Serious: Yes (Other)
  Sender: FDA-Public Use
  Company Number: US-BRISTOL-MYERS SQUIBB COMPANY-15435894

PATIENT
  Age: 1 Decade
  Sex: Male

DRUGS (2)
  1. ABILIFY [Suspect]
     Dosage: 10 DAYS BEFORE DOSE WAS 1MG THEN INCREASED TO 2MG
  2. ZOLOFT [Concomitant]

REACTIONS (2)
  - MANIA [None]
  - PSYCHOTIC DISORDER [None]
